FAERS Safety Report 8417662-4 (Version None)
Quarter: 2012Q2

REPORT INFORMATION
  Report Type: 
  Country: None (occurrence: None)
  Receive Date: 20120606
  Receipt Date: 20120529
  Transmission Date: 20120825
  Serious: Yes (Other)
  Sender: FDA-Public Use
  Company Number: JP-VERTEX PHARMACEUTICALS INC.-AE-2012-007598

PATIENT
  Age: 61 Year
  Sex: Male

DRUGS (9)
  1. REBAMIPIDE [Concomitant]
     Route: 048
  2. TELAVIC (TELAPREVIR) [Suspect]
     Indication: HEPATITIS C
     Route: 048
     Dates: start: 20120210, end: 20120503
  3. REBETOL [Concomitant]
     Indication: HEPATITIS C
     Route: 048
     Dates: start: 20120210, end: 20120301
  4. REBETOL [Concomitant]
     Route: 048
     Dates: start: 20120420
  5. PEG-INTRON [Concomitant]
     Indication: HEPATITIS C
     Route: 058
     Dates: start: 20120210
  6. REBETOL [Concomitant]
     Route: 048
     Dates: start: 20120309, end: 20120419
  7. REBETOL [Concomitant]
     Route: 048
     Dates: start: 20120302, end: 20120308
  8. AMLODIPINE [Concomitant]
     Route: 048
  9. LEVOTHYROXINE SODIUM [Concomitant]
     Route: 048

REACTIONS (3)
  - ERYTHEMA [None]
  - HYPERURICAEMIA [None]
  - HAEMOGLOBIN DECREASED [None]
